FAERS Safety Report 13852122 (Version 2)
Quarter: 2017Q3

REPORT INFORMATION
  Report Type: Spontaneous
  Country: US (occurrence: US)
  Receive Date: 20170810
  Receipt Date: 20170811
  Transmission Date: 20171127
  Serious: No
  Sender: FDA-Public Use
  Company Number: US-PFIZER INC-2017346833

PATIENT
  Age: 62 Year
  Sex: Female

DRUGS (12)
  1. GABAPENTIN. [Suspect]
     Active Substance: GABAPENTIN
     Indication: PAIN
     Dosage: 600 MG, 2X/DAY
     Route: 048
  2. ETODOLAC. [Suspect]
     Active Substance: ETODOLAC
     Indication: PAIN
     Dosage: 400 MG, 2X/DAY
     Route: 048
  3. CLONAZEPAM. [Concomitant]
     Active Substance: CLONAZEPAM
     Indication: ANXIETY
     Dosage: 5 MG, 1X/DAY
     Route: 048
  4. COENZYME Q10 [Concomitant]
     Active Substance: UBIDECARENONE
     Dosage: UNK
  5. FLECTOR /00372302/ [Concomitant]
     Active Substance: DICLOFENAC SODIUM
     Indication: BACK PAIN
     Dosage: 1 DF, 2X/DAY, ^PLACED EVERYEVERY 12 HOURS^
     Route: 062
  6. HYDROCODONE [Concomitant]
     Active Substance: HYDROCODONE
     Indication: BACK PAIN
     Dosage: [HYDROCODONE BITARTRATE 5 MG]/[ACETAMINOPHEN 325 MG], AS NEEDED
     Route: 048
  7. SIMVASTATIN. [Concomitant]
     Active Substance: SIMVASTATIN
     Indication: BLOOD CHOLESTEROL ABNORMAL
     Dosage: 40 MG, 1X/DAY, ^AT NIGHT^
     Route: 048
  8. LIDOCAINE. [Concomitant]
     Active Substance: LIDOCAINE
     Indication: BACK PAIN
     Dosage: UNK UNK, AS NEEDED (ON FOR 12 HOURS AND OFF FOR 12 HOURS)
     Route: 062
  9. BUTALBITAL APAP CAFFEINE [Concomitant]
     Indication: MIGRAINE
     Dosage: [BUTALBITAL 50 MG]/[CAFFEINE 40 MG]/[PARACETAMOL 325 MG], AS NEEDED EVERY 6 HOURS
     Route: 048
  10. ZOLOFT [Concomitant]
     Active Substance: SERTRALINE HYDROCHLORIDE
     Indication: DEPRESSION
     Dosage: 100 MG, 2X/DAY
  11. TRIBENZOR [Concomitant]
     Active Substance: AMLODIPINE BESYLATE\HYDROCHLOROTHIAZIDE\OLMESARTAN MEDOXOMIL
     Indication: BLOOD PRESSURE ABNORMAL
     Dosage: [AMLODIPINE BESILATE 10 MG]/[HYDROCHLOROTHIAZIDE 25 MG]/[OLMESARTAN MEDOXOMIL 40 MG], 1X/DAY
     Route: 048
  12. PANTOPRAZOLE 500 DR [Concomitant]
     Indication: GASTROOESOPHAGEAL REFLUX DISEASE
     Dosage: 40 MG, 1X/DAY
     Route: 048

REACTIONS (1)
  - Drug ineffective for unapproved indication [Recovered/Resolved]
